FAERS Safety Report 8551725 (Version 2)
Quarter: 2012Q4

REPORT INFORMATION
  Report Type: 
  Country: BR (occurrence: BR)
  Receive Date: 20120508
  Receipt Date: 20121019
  Transmission Date: 20130627
  Serious: Yes (Other)
  Sender: FDA-Public Use
  Company Number: BR-ASTRAZENECA-2012SE27943

PATIENT
  Age: 87 Year
  Sex: Male

DRUGS (1)
  1. ZOLADEX LA [Suspect]
     Indication: PROSTATIC SPECIFIC ANTIGEN INCREASED
     Route: 058
     Dates: start: 201204

REACTIONS (3)
  - Swelling face [Recovering/Resolving]
  - Erythema [Recovered/Resolved]
  - Headache [Unknown]
